FAERS Safety Report 4292612-3 (Version None)
Quarter: 2004Q1

REPORT INFORMATION
  Report Type: 
  Country: None (occurrence: None)
  Receive Date: 20040126
  Receipt Date: 20031016
  Transmission Date: 20041129
  Serious: No
  Sender: FDA-Public Use
  Company Number: USA031050159

PATIENT
  Age: 71 Year
  Sex: Male

DRUGS (3)
  1. FORTEO [Suspect]
     Dates: end: 20030712
  2. PREDNISONE [Concomitant]
  3. ZETIA [Concomitant]

REACTIONS (2)
  - BONE PAIN [None]
  - MUSCLE CRAMP [None]
